FAERS Safety Report 23862302 (Version 6)
Quarter: 2025Q1

REPORT INFORMATION
  Report Type: Spontaneous
  Country: US (occurrence: US)
  Receive Date: 20240516
  Receipt Date: 20250131
  Transmission Date: 20250409
  Serious: Yes (Other)
  Sender: PFIZER
  Company Number: US-PFIZER INC-PV202400063920

PATIENT
  Age: 65 Year
  Sex: Female
  Weight: 62.5 kg

DRUGS (6)
  1. BOSULIF [Suspect]
     Active Substance: BOSUTINIB MONOHYDRATE
     Indication: Chronic myeloid leukaemia
     Dosage: 400 MG, DAILY
     Route: 048
     Dates: start: 20200826
  2. BOSULIF [Suspect]
     Active Substance: BOSUTINIB MONOHYDRATE
     Dosage: 200 MG, DAILY
     Route: 048
  3. BOSULIF [Suspect]
     Active Substance: BOSUTINIB MONOHYDRATE
     Dosage: 100 MG/DAY
     Route: 048
  4. BOSULIF [Suspect]
     Active Substance: BOSUTINIB MONOHYDRATE
     Route: 048
     Dates: start: 20210421
  5. BOSULIF [Suspect]
     Active Substance: BOSUTINIB MONOHYDRATE
     Route: 048
     Dates: start: 20230306
  6. BOSULIF [Suspect]
     Active Substance: BOSUTINIB MONOHYDRATE
     Dosage: 400 MG
     Route: 048

REACTIONS (10)
  - Cytopenia [Unknown]
  - Iron deficiency [Unknown]
  - Malaise [Unknown]
  - Gastrointestinal disorder [Unknown]
  - Liver function test increased [Unknown]
  - Hot flush [Unknown]
  - Diarrhoea [Unknown]
  - Poor venous access [Unknown]
  - Blood creatinine increased [Unknown]
  - Glomerular filtration rate decreased [Unknown]
